FAERS Safety Report 5562472-9 (Version None)
Quarter: 2007Q4

REPORT INFORMATION
  Report Type: 
  Country: None (occurrence: None)
  Receive Date: 20071215
  Receipt Date: 20070108
  Transmission Date: 20080405
  Serious: No
  Sender: FDA-Public Use
  Company Number: US-AMGEN-US206005

PATIENT
  Sex: Male

DRUGS (1)
  1. ENBREL [Suspect]
     Indication: PSORIASIS
     Route: 058
     Dates: end: 20060401

REACTIONS (3)
  - PSORIASIS [None]
  - SKIN INFECTION [None]
  - TRANSIENT ISCHAEMIC ATTACK [None]
